FAERS Safety Report 4631534-2 (Version None)
Quarter: 2005Q2

REPORT INFORMATION
  Report Type: 
  Country: None (occurrence: None)
  Receive Date: 20050407
  Receipt Date: 20050401
  Transmission Date: 20051028
  Serious: Yes (Other)
  Sender: FDA-Public Use
  Company Number: 2005-04-0057

PATIENT
  Age: 57 Year
  Sex: Male
  Weight: 72.5755 kg

DRUGS (3)
  1. CLARINEX D 24 HOUR [Suspect]
     Indication: NASOPHARYNGITIS
     Dosage: 1 TAB QD ORAL
     Route: 048
     Dates: start: 20050319, end: 20050325
  2. LIPITOR [Concomitant]
  3. LOPRESSOR [Concomitant]

REACTIONS (3)
  - BENIGN PROSTATIC HYPERPLASIA [None]
  - DYSURIA [None]
  - URINARY RETENTION [None]
